FAERS Safety Report 5295158-9 (Version None)
Quarter: 2007Q2

REPORT INFORMATION
  Report Type: 
  Country: None (occurrence: None)
  Receive Date: 20070412
  Receipt Date: 20070410
  Transmission Date: 20071010
  Serious: Yes (Other)
  Sender: FDA-Public Use
  Company Number: GB-BOEHRINGER INGELHEIM PHARMACEUTICALS, INC.-2006-UK-04441UK

PATIENT
  Age: 86 Year
  Sex: Male

DRUGS (3)
  1. DIPYRIDAMOLE [Suspect]
     Route: 048
  2. ASPIRIN [Suspect]
     Route: 065
  3. PIROXICAM [Suspect]
     Route: 065

REACTIONS (1)
  - VITREOUS HAEMORRHAGE [None]
